FAERS Safety Report 18120743 (Version 2)
Quarter: 2020Q3

REPORT INFORMATION
  Report Type: Report from Study
  Country: AR (occurrence: AR)
  Receive Date: 20200806
  Receipt Date: 20200817
  Transmission Date: 20201103
  Serious: Yes (Other)
  Sender: FDA-Public Use
  Company Number: PHHY2013AR143515

PATIENT
  Age: 60 Year
  Sex: Female

DRUGS (7)
  1. EXFORGE [Suspect]
     Active Substance: AMLODIPINE BESYLATE\VALSARTAN
     Dosage: 1 DF, QD (320/10 MG DAILY)
     Route: 048
  2. EXFORGE [Suspect]
     Active Substance: AMLODIPINE BESYLATE\VALSARTAN
     Dosage: 0.5 DF, QD (320/10 MG DAILY)
     Route: 048
  3. DILATRANE [Concomitant]
     Indication: ENZYME LEVEL INCREASED
     Dosage: 12.5 MG, QD, STARTS 7 OR 8 YEARS AGO
     Route: 065
  4. EXFORGE [Suspect]
     Active Substance: AMLODIPINE BESYLATE\VALSARTAN
     Dosage: 1 DF, QD (1 IN THE MORNING AND SOMETIMES HALF AT NIGHT)
     Route: 065
  5. EXFORGE [Suspect]
     Active Substance: AMLODIPINE BESYLATE\VALSARTAN
     Indication: HYPERTENSION
     Dosage: 0.5 TABLET (160/10 MG) DAILY
     Route: 048
     Dates: start: 20131028
  6. EXFORGE [Suspect]
     Active Substance: AMLODIPINE BESYLATE\VALSARTAN
     Dosage: UNK
     Route: 065
  7. LEVOTHYROXINE. [Concomitant]
     Active Substance: LEVOTHYROXINE
     Indication: PRODUCT USED FOR UNKNOWN INDICATION
     Dosage: UNK
     Route: 065

REACTIONS (16)
  - Blood pressure increased [Recovered/Resolved]
  - Panic disorder [Recovered/Resolved with Sequelae]
  - Blood pressure increased [Unknown]
  - Feeling abnormal [Recovered/Resolved with Sequelae]
  - Cardiac disorder [Not Recovered/Not Resolved]
  - Hypotension [Recovering/Resolving]
  - Dizziness [Recovered/Resolved]
  - Peripheral swelling [Recovered/Resolved]
  - Blood pressure inadequately controlled [Recovering/Resolving]
  - Anxiety [Recovered/Resolved with Sequelae]
  - Hypertension [Recovered/Resolved]
  - Nervousness [Unknown]
  - Wrong technique in product usage process [Recovered/Resolved]
  - Fear [Recovered/Resolved with Sequelae]
  - Hypertension [Recovered/Resolved]
  - Dry mouth [Recovered/Resolved]

NARRATIVE: CASE EVENT DATE: 20150712
